FAERS Safety Report 5681555-6 (Version None)
Quarter: 2008Q1

REPORT INFORMATION
  Report Type: 
  Country: None (occurrence: None)
  Receive Date: 20080326
  Receipt Date: 20070412
  Transmission Date: 20080703
  Serious: No
  Sender: FDA-Public Use
  Company Number: US-BAYER-US-2007-005929

PATIENT
  Age: 29 Year
  Sex: Female
  Weight: 67 kg

DRUGS (1)
  1. MIRENA [Suspect]
     Indication: ORAL CONTRACEPTION
     Route: 015
     Dates: start: 20051101

REACTIONS (2)
  - MENORRHAGIA [None]
  - VAGINAL HAEMORRHAGE [None]
